FAERS Safety Report 17590698 (Version 3)
Quarter: 2020Q2

REPORT INFORMATION
  Report Type: Spontaneous
  Country: DE (occurrence: DE)
  Receive Date: 20200327
  Receipt Date: 20200417
  Transmission Date: 20200713
  Serious: Yes (Life-Threatening, Hospitalization)
  Sender: FDA-Public Use
  Company Number: DE-ASTRAZENECA-2020SE43063

PATIENT
  Age: 58 Day
  Sex: Male

DRUGS (1)
  1. SYNAGIS [Suspect]
     Active Substance: PALIVIZUMAB
     Indication: PREMATURE BABY
     Dosage: 0.5 ML MONTHLY 14-JAN-2020, 10-FEB-2020 09-MAR-2020, 06-APR-2020,
     Route: 030
     Dates: start: 20200114

REACTIONS (4)
  - Apnoea [Recovered/Resolved]
  - Neonatal hypoxia [Unknown]
  - Respiratory syncytial virus bronchiolitis [Recovering/Resolving]
  - Respiratory failure [Recovered/Resolved]

NARRATIVE: CASE EVENT DATE: 20200227
